FAERS Safety Report 19924169 (Version 2)
Quarter: 2021Q4

REPORT INFORMATION
  Report Type: Spontaneous
  Country: BR (occurrence: BR)
  Receive Date: 20211006
  Receipt Date: 20211018
  Transmission Date: 20220303
  Serious: Yes (Disabling)
  Sender: FDA-Public Use
  Company Number: NVSC2021BR226007

PATIENT
  Age: 50 Year
  Sex: Female

DRUGS (2)
  1. BRINZOLAMIDE\TIMOLOL MALEATE [Suspect]
     Active Substance: BRINZOLAMIDE\TIMOLOL MALEATE
     Indication: Glaucoma
     Dosage: 16.8 MG, QD (10 WITH 6.8 MG)
     Route: 065
  2. BRINZOLAMIDE\TIMOLOL MALEATE [Suspect]
     Active Substance: BRINZOLAMIDE\TIMOLOL MALEATE
     Indication: Intraocular pressure test abnormal
     Dosage: 1 DRP, BID (EACH EYE)
     Route: 065
     Dates: start: 20181022

REACTIONS (8)
  - Thrombosis [Not Recovered/Not Resolved]
  - Heavy menstrual bleeding [Unknown]
  - Iron deficiency anaemia [Not Recovered/Not Resolved]
  - Hypoaesthesia [Unknown]
  - Ocular discomfort [Unknown]
  - Abnormal sensation in eye [Unknown]
  - Peripheral vascular disorder [Unknown]
  - Visual impairment [Not Recovered/Not Resolved]
